FAERS Safety Report 7086570-6 (Version None)
Quarter: 2010Q4

REPORT INFORMATION
  Report Type: 
  Country: None (occurrence: None)
  Receive Date: 20101105
  Receipt Date: 20101026
  Transmission Date: 20110411
  Serious: Yes (Hospitalization, Other)
  Sender: FDA-Public Use
  Company Number: PHHY2010NL64532

PATIENT

DRUGS (9)
  1. EVEROLIMUS [Suspect]
     Indication: NEUROENDOCRINE TUMOUR
     Dosage: 10 MG
     Route: 048
     Dates: start: 20091223, end: 20100811
  2. PARACETAMOL [Concomitant]
     Dosage: 4DD 1000MG
  3. AMITRIPTYLINE HCL [Concomitant]
     Dosage: 1DD 25MG
  4. BISACODYL [Concomitant]
     Dosage: IF NECESARY 5MG
  5. FENTANYL [Concomitant]
     Dosage: (PATCH) 75UG
  6. METOCLOPRAMIDE [Concomitant]
     Dosage: IF NECESARY 4DD10MG
  7. RIVOTRIL [Concomitant]
     Dosage: 5 MG,
     Route: 048
     Dates: start: 20100901, end: 20100930
  8. PANTOPRAZOLE SODIUM [Concomitant]
     Dosage: UNK
     Route: 048
     Dates: start: 20100901
  9. SEROQUEL [Concomitant]
     Dosage: UNK
     Route: 048
     Dates: start: 20100831, end: 20100910

REACTIONS (2)
  - ABDOMINAL PAIN [None]
  - PANCREATITIS [None]
